FAERS Safety Report 10415173 (Version 1)
Quarter: 2014Q3

REPORT INFORMATION
  Report Type: Spontaneous
  Country: DE (occurrence: DE)
  Receive Date: 20140828
  Receipt Date: 20140828
  Transmission Date: 20150326
  Serious: Yes (Other)
  Sender: FDA-Public Use
  Company Number: DE-AMGEN-DEUSP2014065004

PATIENT
  Age: 70 Year
  Sex: Male

DRUGS (1)
  1. MIMPARA [Suspect]
     Active Substance: CINACALCET HYDROCHLORIDE
     Indication: HYPERPARATHYROIDISM PRIMARY
     Dosage: UNK MG, UNK
     Route: 065

REACTIONS (3)
  - Parathyroid gland enlargement [Unknown]
  - Drug resistance [Unknown]
  - Blood calcium increased [Unknown]
